FAERS Safety Report 13397756 (Version 1)
Quarter: 2017Q2

REPORT INFORMATION
  Report Type: Spontaneous
  Country: JP (occurrence: JP)
  Receive Date: 20170403
  Receipt Date: 20170403
  Transmission Date: 20170830
  Serious: Yes (Death, Hospitalization)
  Sender: FDA-Public Use
  Company Number: JP-PFIZER INC-2017137356

PATIENT
  Age: 89 Year
  Sex: Female
  Weight: 42 kg

DRUGS (9)
  1. ALDACTONE A 25MG [Suspect]
     Active Substance: SPIRONOLACTONE
     Dosage: 25 MG, 1X/DAY
     Route: 048
  2. SAMSCA [Suspect]
     Active Substance: TOLVAPTAN
     Indication: CARDIAC FAILURE CONGESTIVE
     Dosage: 7.5 MG, 1X/DAY
     Route: 048
     Dates: start: 20161217
  3. WARFARIN [Concomitant]
     Active Substance: WARFARIN
     Dosage: UNK
  4. ENALAPRIL MALEATE. [Concomitant]
     Active Substance: ENALAPRIL MALEATE
     Dosage: UNK
  5. BISOPROLOL [Concomitant]
     Active Substance: BISOPROLOL
     Dosage: UNK
  6. VERAPAMIL HCL [Concomitant]
     Active Substance: VERAPAMIL HYDROCHLORIDE
     Dosage: UNK
  7. AZOSEMIDE [Suspect]
     Active Substance: AZOSEMIDE
     Dosage: 15 MG, 1X/DAY
     Route: 048
     Dates: start: 20161217
  8. AZOSEMIDE [Suspect]
     Active Substance: AZOSEMIDE
     Dosage: 30 UNK, UNK
     Route: 048
  9. AZOSEMIDE [Suspect]
     Active Substance: AZOSEMIDE
     Dosage: 60 MG, 1X/DAY
     Route: 048
     Dates: start: 20161209

REACTIONS (2)
  - Dehydration [Unknown]
  - Prerenal failure [Fatal]

NARRATIVE: CASE EVENT DATE: 20161226
